FAERS Safety Report 11531078 (Version 1)
Quarter: 2015Q3

REPORT INFORMATION
  Report Type: Spontaneous
  Country: US (occurrence: US)
  Receive Date: 20150903
  Receipt Date: 20150903
  Transmission Date: 20151125
  Serious: No
  Sender: FDA-Public Use
  Company Number: US-ELI_LILLY_AND_COMPANY-US201301005508

PATIENT
  Sex: Female
  Weight: 55.33 kg

DRUGS (3)
  1. ALDOMET [Concomitant]
     Active Substance: METHYLDOPA
     Indication: HYPERTENSION
     Dosage: 250 MG, QD
     Dates: start: 2006
  2. CYMBALTA [Suspect]
     Active Substance: DULOXETINE HYDROCHLORIDE
     Indication: ANXIETY
     Dosage: 60 MG, QD
     Dates: start: 2009, end: 201208
  3. ALDOMET [Concomitant]
     Active Substance: METHYLDOPA
     Dosage: 500 MG, BID

REACTIONS (1)
  - Maternal exposure before pregnancy [Unknown]
